FAERS Safety Report 13894230 (Version 1)
Quarter: 2017Q3

REPORT INFORMATION
  Report Type: Spontaneous
  Country: None (occurrence: US)
  Receive Date: 20170822
  Receipt Date: 20170822
  Transmission Date: 20171127
  Serious: No
  Sender: FDA-Public Use
  Company Number: US-KALEO, INC-AUVI20170005

PATIENT
  Age: 4 Year
  Sex: Male
  Weight: 18.16 kg

DRUGS (1)
  1. AUVI-Q [Suspect]
     Active Substance: EPINEPHRINE
     Indication: ANAPHYLACTIC REACTION
     Dates: start: 20170209, end: 20170209

REACTIONS (2)
  - Expired product administered [None]
  - Accidental exposure to product by child [None]

NARRATIVE: CASE EVENT DATE: 20170209
